FAERS Safety Report 11723388 (Version 2)
Quarter: 2015Q4

REPORT INFORMATION
  Report Type: Spontaneous
  Country: US (occurrence: None)
  Receive Date: 20151110
  Receipt Date: 20151110
  Transmission Date: 20160304
  Serious: No
  Sender: FDA-Public Use
  Company Number: None

PATIENT
  Age: 62 Year
  Sex: Male
  Weight: 78.93 kg

DRUGS (8)
  1. COQ-10 200MG [Concomitant]
  2. SIMVASTATIN 40 MG [Concomitant]
     Active Substance: SIMVASTATIN
  3. LOSARTAN 100 MG [Concomitant]
  4. LOSARTAN 100 MG TORRENT [Suspect]
     Active Substance: LOSARTAN
     Indication: BLOOD PRESSURE ABNORMAL
     Dosage: 1 PILL
     Route: 048
     Dates: start: 20151001, end: 20151105
  5. ASPIRIN. [Concomitant]
     Active Substance: ASPIRIN
  6. FISH OIL 1200 MG [Concomitant]
  7. ALIVE! NATURES WAY MULTIVITAMIN [Concomitant]
     Active Substance: MINERALS\VITAMINS
  8. D3 1000 OUT [Concomitant]

REACTIONS (3)
  - Product substitution issue [None]
  - Blood pressure increased [None]
  - Product quality issue [None]

NARRATIVE: CASE EVENT DATE: 20151001
